FAERS Safety Report 7845649-9 (Version None)
Quarter: 2011Q4

REPORT INFORMATION
  Report Type: 
  Country: None (occurrence: None)
  Receive Date: 20111025
  Receipt Date: 20111017
  Transmission Date: 20120403
  Serious: Yes (Hospitalization)
  Sender: FDA-Public Use
  Company Number: PT-TEVA-306120ISR

PATIENT
  Sex: Male

DRUGS (4)
  1. VINBLASTINE SULFATE [Suspect]
     Indication: HODGKIN'S DISEASE
  2. DOXORUBICIN HCL [Suspect]
     Indication: HODGKIN'S DISEASE
  3. BLEOMYCIN SULFATE [Suspect]
     Indication: HODGKIN'S DISEASE
  4. DACARBAZINE [Suspect]
     Indication: HODGKIN'S DISEASE

REACTIONS (1)
  - POSTERIOR REVERSIBLE ENCEPHALOPATHY SYNDROME [None]
